FAERS Safety Report 15604556 (Version 1)
Quarter: 2018Q4

REPORT INFORMATION
  Report Type: Spontaneous
  Country: US (occurrence: US)
  Receive Date: 20181110
  Receipt Date: 20181110
  Transmission Date: 20190205
  Serious: Yes (Death, Hospitalization)
  Sender: FDA-Public Use
  Company Number: PHHY2018US150643

PATIENT
  Age: 87 Year
  Sex: Female

DRUGS (2)
  1. LABETALOL [Suspect]
     Active Substance: LABETALOL\LABETALOL HYDROCHLORIDE
     Indication: HAEMORRHAGE INTRACRANIAL
     Route: 042
  2. CARVEDILOL. [Suspect]
     Active Substance: CARVEDILOL
     Indication: PRODUCT USED FOR UNKNOWN INDICATION
     Route: 065

REACTIONS (5)
  - Hypotension [Fatal]
  - Product use in unapproved indication [Unknown]
  - Bradycardia [Fatal]
  - Toxicity to various agents [Fatal]
  - Cardiac arrest [Fatal]
